FAERS Safety Report 6614549-4 (Version None)
Quarter: 2010Q1

REPORT INFORMATION
  Report Type: 
  Country: None (occurrence: None)
  Receive Date: 20100304
  Receipt Date: 20100304
  Transmission Date: 20100710
  Serious: Yes (Disabling)
  Sender: FDA-Public Use
  Company Number: None

PATIENT
  Age: 78 Year
  Sex: Male
  Weight: 106.5953 kg

DRUGS (1)
  1. LEVAQUIN [Suspect]
     Indication: SINUSITIS
     Dosage: 1 500MG PILL DAILY
     Dates: start: 20100113, end: 20100122

REACTIONS (4)
  - PAIN IN EXTREMITY [None]
  - TENDON DISORDER [None]
  - TENDON PAIN [None]
  - WALKING AID USER [None]
